FAERS Safety Report 15050240 (Version 1)
Quarter: 2018Q2

REPORT INFORMATION
  Report Type: Report from Study
  Country: AR (occurrence: AR)
  Receive Date: 20180622
  Receipt Date: 20180622
  Transmission Date: 20180711
  Serious: Yes (Other)
  Sender: FDA-Public Use
  Company Number: PHHY2018AR027560

PATIENT
  Sex: Female

DRUGS (1)
  1. EXFORGE [Suspect]
     Active Substance: AMLODIPINE BESYLATE\VALSARTAN
     Indication: HYPERTENSION
     Dosage: 1 DF (160 UNITS NOT REPORTED), QD
     Route: 065

REACTIONS (4)
  - Memory impairment [Unknown]
  - Wrist fracture [Unknown]
  - Accident [Recovering/Resolving]
  - Fall [Unknown]
